FAERS Safety Report 7903229-0 (Version None)
Quarter: 2011Q4

REPORT INFORMATION
  Report Type: 
  Country: None (occurrence: None)
  Receive Date: 20111108
  Receipt Date: 20111108
  Transmission Date: 20120403
  Serious: Yes (Other)
  Sender: FDA-Public Use
  Company Number: None

PATIENT
  Age: 76 Year
  Sex: Male

DRUGS (3)
  1. METFORMIN HCL [Suspect]
     Indication: DIABETES MELLITUS
     Dosage: TAKE 1 TO 2 TABLETS TWICE A DAY
     Dates: start: 20100628
  2. SIMVASTATIN [Suspect]
  3. AMLODIPINE [Suspect]

REACTIONS (3)
  - PRODUCT ODOUR ABNORMAL [None]
  - PARALYSIS [None]
  - SWELLING [None]
